FAERS Safety Report 7600109-5 (Version None)
Quarter: 2011Q3

REPORT INFORMATION
  Report Type: 
  Country: None (occurrence: None)
  Receive Date: 20110711
  Receipt Date: 20110706
  Transmission Date: 20111222
  Serious: Yes (Death, Other)
  Sender: FDA-Public Use
  Company Number: US-JNJFOC-20110312743

PATIENT
  Sex: Male
  Weight: 77 kg

DRUGS (11)
  1. DEPAKOTE [Concomitant]
     Indication: BIPOLAR I DISORDER
     Route: 065
     Dates: start: 20110319, end: 20110329
  2. INDERAL [Concomitant]
     Indication: AKATHISIA
     Route: 065
     Dates: end: 20110305
  3. BENADRYL [Concomitant]
     Indication: SLEEP DISORDER
     Route: 065
     Dates: start: 20110319, end: 20110329
  4. BENZODIAZEPINES NOS [Concomitant]
     Indication: SCHIZOPHRENIA
     Route: 065
     Dates: start: 20110319, end: 20110329
  5. INDERAL [Concomitant]
     Indication: SCHIZOPHRENIA
     Route: 065
     Dates: end: 20110305
  6. HALDOL [Concomitant]
     Indication: SCHIZOPHRENIA
     Route: 065
  7. INDERAL [Concomitant]
     Route: 065
     Dates: start: 20110319, end: 20110329
  8. INVEGA [Suspect]
     Indication: SCHIZOPHRENIA
     Route: 048
     Dates: start: 20110327
  9. INDERAL [Concomitant]
     Route: 065
     Dates: start: 20110319, end: 20110329
  10. DEPAKOTE [Concomitant]
     Indication: SCHIZOPHRENIA
     Route: 065
     Dates: start: 20110319, end: 20110329
  11. PRILOSEC [Concomitant]
     Indication: GASTROOESOPHAGEAL REFLUX DISEASE
     Route: 065
     Dates: start: 20110319, end: 20110329

REACTIONS (4)
  - DEATH [None]
  - DYSTONIA [None]
  - SWOLLEN TONGUE [None]
  - DYSKINESIA [None]
